FAERS Safety Report 11097259 (Version 3)
Quarter: 2015Q2

REPORT INFORMATION
  Report Type: Spontaneous
  Country: US (occurrence: US)
  Receive Date: 20150507
  Receipt Date: 20150520
  Transmission Date: 20150821
  Serious: Yes (Other)
  Sender: FDA-Public Use
  Company Number: US-UCBSA-2015013513

PATIENT
  Age: 37 Year
  Sex: Female

DRUGS (3)
  1. TEMODAR [Concomitant]
     Active Substance: TEMOZOLOMIDE
     Indication: BRAIN NEOPLASM MALIGNANT
     Dosage: UNKNOWN DOSE
     Dates: start: 201410
  2. VIMPAT [Suspect]
     Active Substance: LACOSAMIDE
     Indication: SEIZURE
     Dosage: 250 MG, 2X/DAY (BID)
     Route: 048
     Dates: start: 2011, end: 2014
  3. VIMPAT [Suspect]
     Active Substance: LACOSAMIDE
     Dosage: INCREASED DOSE
     Dates: start: 2014

REACTIONS (6)
  - Brain neoplasm malignant [Not Recovered/Not Resolved]
  - Off label use [Unknown]
  - Pregnancy [Unknown]
  - Abortion induced [Recovered/Resolved]
  - Prescribed overdose [Unknown]
  - Abdominal pain upper [Unknown]

NARRATIVE: CASE EVENT DATE: 2011
